FAERS Safety Report 19612923 (Version 2)
Quarter: 2021Q3

REPORT INFORMATION
  Report Type: Spontaneous
  Country: PL (occurrence: PL)
  Receive Date: 20210727
  Receipt Date: 20210819
  Transmission Date: 20211014
  Serious: Yes (Other)
  Sender: FDA-Public Use
  Company Number: PL-TEVA-2021-PL-1934979

PATIENT
  Age: 60 Year
  Sex: Male
  Weight: 124 kg

DRUGS (4)
  1. IRINOTECAN ACCORD [Suspect]
     Active Substance: IRINOTECAN
     Indication: COLON CANCER
     Dosage: 335.52MILLIGRAM
     Route: 042
     Dates: start: 20201222, end: 20201222
  2. 5?FLUOROURACIL ^EBEWE^ [Suspect]
     Active Substance: FLUOROURACIL
     Indication: COLON CANCER
     Dosage: 3728MILLIGRAM
     Route: 042
     Dates: start: 20201222, end: 20201224
  3. LEUCOVORIN. [Suspect]
     Active Substance: LEUCOVORIN
     Indication: COLON CANCER
     Dosage: 372.52MILLIGRAM
     Route: 042
     Dates: start: 20201222, end: 20201224
  4. ERBITUX [Suspect]
     Active Substance: CETUXIMAB
     Indication: COLON CANCER
     Dosage: 932MILLIGRAM
     Route: 042
     Dates: start: 20201222, end: 20201222

REACTIONS (1)
  - Neutropenia [Unknown]

NARRATIVE: CASE EVENT DATE: 20210104
